FAERS Safety Report 5622499-5 (Version None)
Quarter: 2008Q1

REPORT INFORMATION
  Report Type: 
  Country: None (occurrence: None)
  Receive Date: 20080211
  Receipt Date: 20080205
  Transmission Date: 20080703
  Serious: Yes (Hospitalization)
  Sender: FDA-Public Use
  Company Number: US-MERCK-0802USA01041

PATIENT
  Age: 76 Year
  Sex: Male

DRUGS (15)
  1. VYTORIN [Suspect]
     Indication: HYPERCHOLESTEROLAEMIA
     Route: 048
     Dates: start: 20070601, end: 20070701
  2. GENGRAF [Concomitant]
     Route: 065
  3. [THERAPY UNSPECIFIED] [Concomitant]
     Route: 065
  4. COUMADIN [Concomitant]
     Route: 065
  5. LOPRESSOR [Concomitant]
     Route: 065
  6. PLAVIX [Concomitant]
     Route: 065
  7. PREDNISONE [Concomitant]
     Route: 065
  8. TYLENOL (CAPLET) [Concomitant]
     Route: 065
  9. MAGNESIUM OXIDE [Concomitant]
     Route: 065
  10. OMEGA-3 MARINE TRIGLYCERIDES [Concomitant]
     Route: 065
  11. NIACIN [Concomitant]
     Route: 065
  12. CALCIUM (UNSPECIFIED) AND VITAMIN D (UNSPECIFIED) [Concomitant]
     Route: 065
  13. ERGOCALCIFEROL [Concomitant]
     Route: 065
  14. TOBRAMYCIN [Concomitant]
     Route: 065
  15. ASPIRIN [Concomitant]
     Route: 065

REACTIONS (8)
  - CARDIAC DISORDER [None]
  - CHROMATURIA [None]
  - FATIGUE [None]
  - HEART RATE INCREASED [None]
  - LIVER DISORDER [None]
  - MUSCULAR WEAKNESS [None]
  - RENAL DISORDER [None]
  - THROMBOSIS [None]
